FAERS Safety Report 8085572-0 (Version None)
Quarter: 2012Q1

REPORT INFORMATION
  Report Type: 
  Country: None (occurrence: None)
  Receive Date: 20120128
  Receipt Date: 20120120
  Transmission Date: 20120608
  Serious: Yes (Other)
  Sender: FDA-Public Use
  Company Number: US-ALLERGAN-1200923US

PATIENT

DRUGS (1)
  1. BOTULINUM TOXIN TYPE A [Suspect]
     Indication: TORTICOLLIS
     Dosage: UNK UNITS, SINGLE
     Route: 030

REACTIONS (2)
  - PNEUMOTHORAX [None]
  - WRONG TECHNIQUE IN DRUG USAGE PROCESS [None]
